FAERS Safety Report 9245047 (Version 2)
Quarter: 2014Q4

REPORT INFORMATION
  Report Type: Report from Study
  Country: AR (occurrence: AR)
  Receive Date: 20130422
  Receipt Date: 20141030
  Transmission Date: 20150529
  Serious: Yes (Hospitalization, Other)
  Sender: FDA-Public Use
  Company Number: AR-SHIRE-ALL1-2013-02471

PATIENT
  Age: 2 Year
  Sex: Male
  Weight: 25.5 kg

DRUGS (12)
  1. IDURSULFASE [Suspect]
     Active Substance: IDURSULFASE
     Indication: MUCOPOLYSACCHARIDOSIS II
     Dosage: UNK, UNKNOWN
     Route: 041
  2. CEFTRIAXONE. [Concomitant]
     Active Substance: CEFTRIAXONE
     Indication: ANTIBIOTIC THERAPY
     Dosage: 50 MG, 2X/DAY:BID
     Route: 042
     Dates: start: 20121108
  3. RANITIDINE [Concomitant]
     Active Substance: RANITIDINE\RANITIDINE HYDROCHLORIDE
     Indication: PROPHYLAXIS
     Dosage: 10 MG, 2X/DAY:BID
     Route: 048
     Dates: start: 20121108
  4. IBUPROFEN. [Concomitant]
     Active Substance: IBUPROFEN
     Indication: PRODUCT USED FOR UNKNOWN INDICATION
     Dosage: 10 MG, 1X/DAY:QD
     Route: 048
     Dates: start: 20121108
  5. DEXAMETHASONE. [Concomitant]
     Active Substance: DEXAMETHASONE
     Indication: RESPIRATORY DISORDER
     Dosage: 0.4 MG, 4X/DAY:QID
     Route: 042
     Dates: start: 20121108
  6. BENADRYL [Concomitant]
     Active Substance: DIPHENHYDRAMINE HYDROCHLORIDE
     Indication: RHINORRHOEA
     Dosage: UNK, UNKNOWN
     Route: 065
     Dates: start: 20121108
  7. VALPROIC ACID. [Concomitant]
     Active Substance: VALPROIC ACID
     Indication: ABNORMAL BEHAVIOUR
     Dosage: 25 MG, 1X/DAY:QD
     Route: 048
     Dates: start: 20120816
  8. DIPHENHYDRAMINE [Concomitant]
     Active Substance: DIPHENHYDRAMINE
     Indication: PREMEDICATION
     Dosage: UNK, UNKNOWN
     Route: 065
     Dates: start: 20120517
  9. DEXTRO [Concomitant]
     Indication: NUTRITIONAL SUPPLEMENTATION
     Dosage: UNK UNK, UNKNOWN
     Route: 065
     Dates: start: 20100705
  10. OTHER THERAPEUTIC PRODUCTS [Concomitant]
     Active Substance: UNSPECIFIED INGREDIENT
     Indication: PREMEDICATION
     Dosage: UNK, UNKNOWN
     Route: 065
  11. SALBUTAMOL [Concomitant]
     Active Substance: ALBUTEROL
     Indication: PRODUCT USED FOR UNKNOWN INDICATION
     Dosage: UNK, UNKNOWN
     Route: 065
     Dates: start: 20121108
  12. FLUTICASONE [Concomitant]
     Active Substance: FLUTICASONE\FLUTICASONE PROPIONATE
     Indication: PRODUCT USED FOR UNKNOWN INDICATION
     Dosage: UNK, UNKNOWN
     Route: 065
     Dates: start: 20121108

REACTIONS (3)
  - Dyspnoea [Unknown]
  - Respiratory distress [Unknown]
  - Pyrexia [Unknown]

NARRATIVE: CASE EVENT DATE: 20121108
